FAERS Safety Report 9393199 (Version 1)
Quarter: 2013Q3

REPORT INFORMATION
  Report Type: Spontaneous
  Country: US (occurrence: US)
  Receive Date: 20130710
  Receipt Date: 20130710
  Transmission Date: 20140515
  Serious: Yes (Hospitalization)
  Sender: FDA-Public Use
  Company Number: US-UCBSA-090925

PATIENT
  Sex: 0

DRUGS (1)
  1. CIMZIA [Suspect]
     Indication: CROHN^S DISEASE
     Route: 064
     Dates: start: 2012, end: 2012

REACTIONS (2)
  - Respiratory syncytial virus infection [Unknown]
  - Foetal exposure during pregnancy [Recovered/Resolved]
